FAERS Safety Report 17872333 (Version 7)
Quarter: 2020Q3

REPORT INFORMATION
  Report Type: Report from Study
  Country: CA (occurrence: CA)
  Receive Date: 20200608
  Receipt Date: 20200915
  Transmission Date: 20201103
  Serious: Yes (Other)
  Sender: FDA-Public Use
  Company Number: CA-NALPROPION PHARMACEUTICALS INC.-2020-010237

PATIENT

DRUGS (8)
  1. CONTRAVE [Suspect]
     Active Substance: BUPROPION HYDROCHLORIDE\NALTREXONE HYDROCHLORIDE
     Dosage: STRENGTH: 90/8 MG (1 TABLET IN MORNING AND 1 TABLET IN EVENING)
     Route: 048
     Dates: start: 20200306, end: 20200312
  2. TURMERIC                           /01079602/ [Concomitant]
     Active Substance: HERBALS\TURMERIC
     Indication: SUPPLEMENTATION THERAPY
     Dosage: DAILY
     Route: 048
  3. METFORMIN [Concomitant]
     Active Substance: METFORMIN HYDROCHLORIDE
     Indication: POLYCYSTIC OVARIES
     Dosage: DAILY
     Route: 048
  4. VIT D [Concomitant]
     Active Substance: VITAMIN D NOS
     Indication: SUPPLEMENTATION THERAPY
     Dosage: DAILY
     Route: 048
  5. CONTRAVE [Suspect]
     Active Substance: BUPROPION HYDROCHLORIDE\NALTREXONE HYDROCHLORIDE
     Dosage: STRENGTH: 90/8 MG (2 TABLETS IN MORNING AND 1 TABLET IN EVENING)
     Route: 048
     Dates: start: 20200313, end: 20200319
  6. ASPIRIN                            /00002701/ [Concomitant]
     Active Substance: ASPIRIN
     Indication: MIGRAINE
     Dosage: UNK
  7. CONTRAVE [Suspect]
     Active Substance: BUPROPION HYDROCHLORIDE\NALTREXONE HYDROCHLORIDE
     Indication: WEIGHT CONTROL
     Dosage: STRENGTH: 90/8 MG (1 TABLET IN MORNING)
     Route: 048
     Dates: start: 20200228, end: 20200305
  8. CONTRAVE [Suspect]
     Active Substance: BUPROPION HYDROCHLORIDE\NALTREXONE HYDROCHLORIDE
     Dosage: STRENGTH: 90/8 MG (2 TABLETS IN MORNING AND 2 TABLETS IN EVENING)
     Route: 048
     Dates: start: 20200320, end: 20200821

REACTIONS (14)
  - Therapeutic product effect incomplete [Unknown]
  - Migraine [Recovering/Resolving]
  - Hypersensitivity [Recovered/Resolved]
  - Cholelithiasis [Not Recovered/Not Resolved]
  - Rash [Recovered/Resolved]
  - Insomnia [Not Recovered/Not Resolved]
  - Deafness [Recovered/Resolved]
  - Muscle spasms [Not Recovered/Not Resolved]
  - Nausea [Not Recovered/Not Resolved]
  - Urticaria [Recovered/Resolved]
  - Therapy cessation [Unknown]
  - Neck pain [Recovered/Resolved]
  - Headache [Recovered/Resolved]
  - Hyperhidrosis [Recovered/Resolved]

NARRATIVE: CASE EVENT DATE: 2020
